FAERS Safety Report 6896196-2 (Version None)
Quarter: 2010Q3

REPORT INFORMATION
  Report Type: 
  Country: None (occurrence: None)
  Receive Date: 20100802
  Receipt Date: 20100726
  Transmission Date: 20110219
  Serious: Yes (Congenital Anomaly)
  Sender: FDA-Public Use
  Company Number: A0872215A

PATIENT
  Sex: Female

DRUGS (5)
  1. EPIVIR [Suspect]
     Indication: HIV INFECTION
     Dates: start: 20030404, end: 20030905
  2. VIRAMUNE [Suspect]
     Indication: HIV INFECTION
     Dates: start: 20030404, end: 20030905
  3. VIDEX [Suspect]
     Indication: HIV INFECTION
     Dates: start: 20030404, end: 20030905
  4. ACYCLOVIR [Concomitant]
  5. BENZATHINE PENICILLIN G [Concomitant]

REACTIONS (2)
  - DRUG EXPOSURE DURING PREGNANCY [None]
  - VENTRICULAR SEPTAL DEFECT [None]
